FAERS Safety Report 23580626 (Version 1)
Quarter: 2024Q1

REPORT INFORMATION
  Report Type: Spontaneous
  Country: JP (occurrence: None)
  Receive Date: 20240229
  Receipt Date: 20240229
  Transmission Date: 20240409
  Serious: Yes (Other)
  Sender: FDA-Public Use
  Company Number: 2024A014240

PATIENT
  Sex: Male

DRUGS (2)
  1. IMFINZI [Suspect]
     Active Substance: DURVALUMAB
     Indication: Non-small cell lung cancer
     Dosage: 1500 MG 3????, UNKNOWN
     Route: 041
     Dates: start: 20240116
  2. IMJUDO [Suspect]
     Active Substance: TREMELIMUMAB\TREMELIMUMAB-ACTL
     Indication: Non-small cell lung cancer
     Dosage: 75 MG 3????, UNKNOWN
     Route: 041
     Dates: start: 20240116

REACTIONS (6)
  - Cytokine release syndrome [Unknown]
  - Arrhythmia [Recovered/Resolved]
  - Pyrexia [Unknown]
  - Skin disorder [Unknown]
  - Interleukin level increased [Unknown]
  - Serum ferritin increased [Unknown]

NARRATIVE: CASE EVENT DATE: 20240101
